FAERS Safety Report 9626497 (Version 4)
Quarter: 2014Q3

REPORT INFORMATION
  Report Type: Spontaneous
  Country: GB (occurrence: GB)
  Receive Date: 20131016
  Receipt Date: 20140827
  Transmission Date: 20150326
  Serious: Yes (Hospitalization, Other)
  Sender: FDA-Public Use
  Company Number: GB-TEVA-437286ISR

PATIENT
  Age: 21 Year
  Sex: Male
  Weight: 111.6 kg

DRUGS (9)
  1. ZAPONEX [Suspect]
     Active Substance: CLOZAPINE
     Route: 048
     Dates: start: 20130722
  2. ZAPONEX [Suspect]
     Active Substance: CLOZAPINE
     Indication: SCHIZOPHRENIA
     Dosage: 100MG MORNING, 200MG AT NIGHT. CLOZAPINE WAS TEMPORARILY HELD.
     Route: 048
     Dates: start: 20130520
  3. EPILIM [Concomitant]
     Active Substance: VALPROATE SODIUM
     Indication: EPILEPSY
  4. RISPERIDONE. [Suspect]
     Active Substance: RISPERIDONE
     Indication: SCHIZOPHRENIA
     Dosage: 12 MILLIGRAM DAILY; DOSE REDUCED TO 2MG TWICE DAILY FOLLOWING REACTION
     Route: 048
     Dates: end: 20130721
  5. ZAPONEX [Suspect]
     Active Substance: CLOZAPINE
     Dosage: TITRATION COMMENCED 05/07/2013. FULL DOSE REACHED ON 20/07/2013
     Route: 048
     Dates: start: 20130705, end: 20130720
  6. LORAZEPAM. [Concomitant]
     Active Substance: LORAZEPAM
  7. RISPERIDONE. [Suspect]
     Active Substance: RISPERIDONE
     Dosage: 4 MILLIGRAM DAILY; DOSE REDUCED TO 2MG TWICE DAILY FOLLOWING REACTION
     Route: 048
     Dates: start: 20130721
  8. EPILIM [Concomitant]
     Active Substance: VALPROATE SODIUM
     Indication: MOOD ALTERED
     Dosage: 2 GRAM DAILY; LONG TERM
     Route: 048
  9. KWELLS [Concomitant]
     Active Substance: SCOPOLAMINE HYDROBROMIDE
     Indication: SALIVARY HYPERSECRETION
     Dosage: 300 MICROGRAM DAILY; AT NIGHT
     Route: 048

REACTIONS (10)
  - Hypertension [Recovered/Resolved]
  - Platelet count decreased [Recovered/Resolved]
  - Neuroleptic malignant syndrome [Recovered/Resolved]
  - Viral infection [Recovered/Resolved]
  - Pyrexia [Recovered/Resolved]
  - Hyperhidrosis [Recovered/Resolved]
  - Blood creatine phosphokinase increased [Recovered/Resolved]
  - Tachycardia [Recovered/Resolved]
  - C-reactive protein increased [Recovered/Resolved]
  - Red blood cell count decreased [Recovered/Resolved]

NARRATIVE: CASE EVENT DATE: 20130719
